FAERS Safety Report 6519681-1 (Version None)
Quarter: 2009Q4

REPORT INFORMATION
  Report Type: 
  Country: None (occurrence: None)
  Receive Date: 20091228
  Receipt Date: 20091221
  Transmission Date: 20100525
  Serious: Yes (Hospitalization)
  Sender: FDA-Public Use
  Company Number: US-RB-027241-09

PATIENT
  Age: 50 Year
  Sex: Female

DRUGS (2)
  1. SUBOXONE [Suspect]
     Route: 060
     Dates: start: 20080101
  2. ANTIDEPRESSANT [Concomitant]
     Indication: DEPRESSION
     Dosage: DOSING INFORMATION IS UNKNOWN.
     Route: 065
     Dates: start: 20080301

REACTIONS (3)
  - FATIGUE [None]
  - PERFORATED ULCER [None]
  - VOMITING [None]
